FAERS Safety Report 22347209 (Version 1)
Quarter: 2023Q2

REPORT INFORMATION
  Report Type: Spontaneous
  Country: US (occurrence: None)
  Receive Date: 20230521
  Receipt Date: 20230521
  Transmission Date: 20230722
  Serious: No
  Sender: FDA-Public Use
  Company Number: 2023A114444

PATIENT
  Sex: Female

DRUGS (2)
  1. BREZTRI [Suspect]
     Active Substance: BUDESONIDE\FORMOTEROL\GLYCOPYRROLATE
     Indication: Chronic obstructive pulmonary disease
     Route: 055
     Dates: start: 20230321
  2. DALIRESP [Suspect]
     Active Substance: ROFLUMILAST
     Indication: Chronic obstructive pulmonary disease
     Route: 048

REACTIONS (8)
  - Asthma [Unknown]
  - Illness [Unknown]
  - Cough [Unknown]
  - Incorrect dose administered by device [Unknown]
  - Drug dose omission by device [Unknown]
  - Intentional device use issue [Unknown]
  - Incorrect dose administered [Unknown]
  - Device malfunction [Unknown]
